FAERS Safety Report 15482090 (Version 2)
Quarter: 2018Q4

REPORT INFORMATION
  Report Type: Spontaneous
  Country: GB (occurrence: GB)
  Receive Date: 20181010
  Receipt Date: 20181015
  Transmission Date: 20190205
  Serious: Yes (Hospitalization)
  Sender: FDA-Public Use
  Company Number: GB-TEVA-2018-GB-962034

PATIENT
  Sex: Female

DRUGS (2)
  1. PREDNISOLONE. [Suspect]
     Active Substance: PREDNISOLONE
     Indication: PRODUCT USED FOR UNKNOWN INDICATION
     Dosage: TREATED WITH HIGH DOSE OF PREDNISOLONE (NOT SPECIFIED) FOR 4 YEARS
     Route: 065
     Dates: start: 2014
  2. PREDNISOLONE. [Suspect]
     Active Substance: PREDNISOLONE
     Dosage: 5 MILLIGRAM DAILY;
     Route: 065

REACTIONS (6)
  - Malaise [Unknown]
  - Diarrhoea [Unknown]
  - Erythema [Unknown]
  - Disorientation [Unknown]
  - Oedema peripheral [Unknown]
  - Pain [Unknown]
